FAERS Safety Report 11204842 (Version 1)
Quarter: 2015Q2

REPORT INFORMATION
  Report Type: Spontaneous
  Country: GB (occurrence: GB)
  Receive Date: 20150622
  Receipt Date: 20150622
  Transmission Date: 20150821
  Serious: Yes (Other)
  Sender: FDA-Public Use
  Company Number: GB-ACCORD-031519

PATIENT
  Age: 72 Year
  Sex: Female
  Weight: 57.15 kg

DRUGS (5)
  1. PHENYTOIN/PHENYTOIN CALCIUM/PHENYTOIN SODIUM [Concomitant]
     Indication: EPILEPSY
     Dosage: 200 MILLIGRAM DAILY
  2. PHENOBARBITAL. [Concomitant]
     Active Substance: PHENOBARBITAL
     Indication: EPILEPSY
     Dosage: 120 MILLIGRAM DAILY
  3. CLOPIDOGREL [Suspect]
     Active Substance: CLOPIDOGREL BISULFATE
     Indication: PROPHYLAXIS
     Dosage: ALSO RECEIVED ON 17-DEC-2014 FOR STROKE PREVENTION
     Route: 048
     Dates: start: 20141210, end: 20150405
  4. THIAMINE [Concomitant]
     Active Substance: THIAMINE
     Route: 065
  5. CALCICHEW D3 [Concomitant]
     Active Substance: CALCIUM\CHOLECALCIFEROL
     Dosage: ONE TO TWO TABLETS THREE TIMES A DAY
     Route: 065

REACTIONS (7)
  - Epilepsy [Unknown]
  - Head injury [Unknown]
  - Headache [Unknown]
  - Hyperhidrosis [Unknown]
  - Fatigue [Unknown]
  - Rash [Unknown]
  - Pruritus [Unknown]

NARRATIVE: CASE EVENT DATE: 20141231
